FAERS Safety Report 10098715 (Version 1)
Quarter: 2014Q2

REPORT INFORMATION
  Report Type: Spontaneous
  Country: US (occurrence: US)
  Receive Date: 20140423
  Receipt Date: 20140423
  Transmission Date: 20141212
  Serious: Yes (Other)
  Sender: FDA-Public Use
  Company Number: US-SA-2014SA052316

PATIENT
  Age: 19 Year
  Sex: Male

DRUGS (1)
  1. ALLEGRA [Suspect]
     Indication: HYPERSENSITIVITY
     Route: 065
     Dates: start: 20140416, end: 20140416

REACTIONS (3)
  - Idiopathic angioedema [Recovered/Resolved]
  - Lip swelling [Recovered/Resolved]
  - Asthma [Recovered/Resolved]
